FAERS Safety Report 23636823 (Version 1)
Quarter: 2024Q1

REPORT INFORMATION
  Report Type: Spontaneous
  Country: FR (occurrence: FR)
  Receive Date: 20240315
  Receipt Date: 20240315
  Transmission Date: 20240409
  Serious: Yes (Hospitalization)
  Sender: FDA-Public Use
  Company Number: None

PATIENT
  Age: 75 Year
  Sex: Female
  Weight: 117 kg

DRUGS (5)
  1. AMOXICILLIN [Suspect]
     Active Substance: AMOXICILLIN
     Indication: Tooth abscess
     Dosage: 3000 MILLIGRAM, QD (2 TABLETS X3/DAY)
     Route: 048
     Dates: start: 20240205, end: 20240206
  2. CLINDAMYCIN [Suspect]
     Active Substance: CLINDAMYCIN
     Indication: Tooth abscess
     Dosage: UNK
     Route: 048
     Dates: start: 20240206, end: 20240209
  3. CLAVULANIC ACID [Suspect]
     Active Substance: CLAVULANIC ACID
     Indication: Tooth abscess
     Dosage: 375 MILLIGRAM, QD (2 TABLETS X3/DAY)
     Route: 048
     Dates: start: 20240205, end: 20240206
  4. METRONIDAZOLE [Suspect]
     Active Substance: METRONIDAZOLE
     Indication: Tooth abscess
     Dosage: UNK
     Route: 048
     Dates: start: 20240206, end: 20240209
  5. IOMERON [Suspect]
     Active Substance: IOMEPROL
     Indication: Computerised tomogram
     Dosage: 90 MILLILITER
     Route: 042
     Dates: start: 20240205, end: 20240205

REACTIONS (1)
  - Acute generalised exanthematous pustulosis [Recovering/Resolving]
